FAERS Safety Report 16843482 (Version 2)
Quarter: 2019Q4

REPORT INFORMATION
  Report Type: Spontaneous
  Country: AU (occurrence: AU)
  Receive Date: 20190924
  Receipt Date: 20191110
  Transmission Date: 20200122
  Serious: Yes (Other)
  Sender: FDA-Public Use
  Company Number: AU-AMGEN-AUSSP2019156178

PATIENT
  Age: 63 Year
  Sex: Male

DRUGS (1)
  1. ENBREL [Suspect]
     Active Substance: ETANERCEPT
     Indication: PRODUCT USED FOR UNKNOWN INDICATION
     Dosage: UNK
     Route: 065

REACTIONS (6)
  - Injection site swelling [Unknown]
  - Neoplasm malignant [Unknown]
  - Abdominal distension [Unknown]
  - Irritable bowel syndrome [Unknown]
  - Injection site pruritus [Unknown]
  - Headache [Unknown]

NARRATIVE: CASE EVENT DATE: 2014
